FAERS Safety Report 21728277 (Version 3)
Quarter: 2023Q2

REPORT INFORMATION
  Report Type: Report from Study
  Country: US (occurrence: US)
  Receive Date: 20221214
  Receipt Date: 20230403
  Transmission Date: 20230721
  Serious: Yes (Other)
  Sender: FDA-Public Use
  Company Number: US-MYLANLABS-2022M1138421

PATIENT
  Age: 29 Year
  Sex: Female

DRUGS (4)
  1. AMNESTEEM [Suspect]
     Active Substance: ISOTRETINOIN
     Indication: Product used for unknown indication
     Dosage: UNK
     Route: 065
  2. AMNESTEEM [Suspect]
     Active Substance: ISOTRETINOIN
     Dosage: UNK
     Route: 065
     Dates: start: 20220518, end: 20221206
  3. AMNESTEEM [Suspect]
     Active Substance: ISOTRETINOIN
     Dosage: 80 MILLIGRAM
     Route: 065
     Dates: end: 20221113
  4. AMNESTEEM [Suspect]
     Active Substance: ISOTRETINOIN
     Indication: Product used for unknown indication
     Dosage: UNK (AVERAGE DAILY DOSE WAS 80 MG)
     Route: 065
     Dates: start: 20220606, end: 20221205

REACTIONS (3)
  - Maternal exposure during pregnancy [Unknown]
  - COVID-19 [Unknown]
  - Contraindicated product administered [Unknown]

NARRATIVE: CASE EVENT DATE: 20221206
